FAERS Safety Report 8193542-7 (Version None)
Quarter: 2012Q1

REPORT INFORMATION
  Report Type: 
  Country: None (occurrence: None)
  Receive Date: 20120308
  Receipt Date: 20120302
  Transmission Date: 20120608
  Serious: Yes (Death)
  Sender: FDA-Public Use
  Company Number: US-ROCHE-1045456

PATIENT
  Sex: Male

DRUGS (7)
  1. TEMODAR [Concomitant]
  2. DACARBAZINE [Concomitant]
  3. ABRAXANE [Concomitant]
  4. ZELBORAF [Suspect]
     Indication: METASTASES TO CENTRAL NERVOUS SYSTEM
  5. AVASTIN [Suspect]
     Indication: MALIGNANT MELANOMA
     Route: 065
     Dates: start: 20101220
  6. ZELBORAF [Suspect]
     Indication: MALIGNANT MELANOMA
     Dosage: DOSE: 4 TABS BID
     Route: 065
  7. ZELBORAF [Suspect]

REACTIONS (1)
  - DEATH [None]
